FAERS Safety Report 7600219-2 (Version None)
Quarter: 2011Q3

REPORT INFORMATION
  Report Type: 
  Country: None (occurrence: None)
  Receive Date: 20110711
  Receipt Date: 20110705
  Transmission Date: 20111222
  Serious: Yes (Death, Life-Threatening, Hospitalization, Other)
  Sender: FDA-Public Use
  Company Number: PHHY2011US50024

PATIENT
  Sex: Male
  Weight: 121.54 kg

DRUGS (18)
  1. EXJADE [Suspect]
     Dosage: 1000 MG, QD
     Dates: start: 20110425
  2. ACTOS [Concomitant]
     Indication: DIABETES MELLITUS
     Dosage: 45 MG, DAILY
  3. PEPCID [Concomitant]
     Indication: GASTROOESOPHAGEAL REFLUX DISEASE
     Dosage: 20 MG, DAILY
     Route: 048
  4. DIFLUCAN [Concomitant]
     Dosage: 100 MG, DAILY
  5. REGLAN [Concomitant]
     Indication: GASTROOESOPHAGEAL REFLUX DISEASE
     Dosage: 5 MG, TID
     Route: 048
  6. LASIX [Concomitant]
     Dosage: 40 MG, BID
  7. POTASSIUM [Concomitant]
     Dosage: 20 MG, DAILY
     Route: 048
  8. LIPITOR [Concomitant]
     Indication: DYSLIPIDAEMIA
     Dosage: 40 MG, DAILY
  9. PHENERGAN HCL [Concomitant]
     Indication: NAUSEA
     Dosage: 25 MG, PRN
  10. LEVAQUIN [Concomitant]
     Indication: PROPHYLAXIS
     Dosage: 250 MG, DAILY
  11. MULTIPLE VITAMINS [Concomitant]
  12. DACOGEN [Concomitant]
  13. EXJADE [Suspect]
     Indication: MYELODYSPLASTIC SYNDROME
     Dosage: 2000 MG, DAILY
     Route: 048
     Dates: start: 20110405
  14. DILANTIN [Concomitant]
     Indication: CONVULSION
     Dosage: 100 MG, TID
     Route: 048
  15. BENADRYL [Concomitant]
     Dosage: 25 MG, DAILY
     Route: 048
  16. NPH INSULIN [Concomitant]
     Indication: DIABETES MELLITUS
  17. DILAUDID [Concomitant]
     Indication: PAIN
  18. TRISENOX [Concomitant]

REACTIONS (10)
  - PLATELET COUNT ABNORMAL [None]
  - NEUTROPENIA [None]
  - LEUKOPENIA [None]
  - FALL [None]
  - ANAEMIA [None]
  - PANCYTOPENIA [None]
  - BLOOD COUNT ABNORMAL [None]
  - ASTHENIA [None]
  - ACUTE MYELOID LEUKAEMIA [None]
  - THROMBOCYTOPENIA [None]
